FAERS Safety Report 9149429 (Version 4)
Quarter: 2013Q2

REPORT INFORMATION
  Report Type: Spontaneous
  Country: JP (occurrence: JP)
  Receive Date: 20130308
  Receipt Date: 20130627
  Transmission Date: 20140414
  Serious: Yes (Disabling, Other)
  Sender: FDA-Public Use
  Company Number: JP-SANOFI-AVENTIS-2013SA022694

PATIENT
  Age: 47 Year
  Sex: Male
  Weight: 73 kg

DRUGS (4)
  1. MYSLEE [Suspect]
     Indication: INSOMNIA
     Route: 048
     Dates: start: 2008
  2. GENINAX [Suspect]
     Indication: OESOPHAGEAL PAIN
     Dosage: FREQ: UNK/D
     Route: 048
     Dates: start: 20130218, end: 20130218
  3. LOXONIN [Concomitant]
     Indication: PHARYNGITIS
     Route: 048
     Dates: start: 20130218, end: 20130221
  4. ALLOZYM [Concomitant]
     Dates: start: 2003

REACTIONS (8)
  - Stomatitis [Not Recovered/Not Resolved]
  - Penile ulceration [Recovered/Resolved with Sequelae]
  - Penile ulceration [Recovered/Resolved with Sequelae]
  - Drug eruption [Recovering/Resolving]
  - Palmar erythema [Recovered/Resolved]
  - Oedema peripheral [Recovering/Resolving]
  - Glossitis [Recovering/Resolving]
  - Conjunctival oedema [Recovered/Resolved]
